FAERS Safety Report 10132980 (Version 1)
Quarter: 2014Q2

REPORT INFORMATION
  Report Type: Spontaneous
  Country: US (occurrence: US)
  Receive Date: 20140428
  Receipt Date: 20140428
  Transmission Date: 20141212
  Serious: No
  Sender: FDA-Public Use
  Company Number: US-BRACCO-009629

PATIENT
  Sex: 0

DRUGS (1)
  1. PROHANCE [Suspect]
     Indication: NUCLEAR MAGNETIC RESONANCE IMAGING
     Dosage: POSSIBLE ORAL ADMINISTRATION TO INFANT PATIENT BY BREAST FEED.
     Route: 048
     Dates: start: 20130510, end: 20130510

REACTIONS (2)
  - Exposure during breast feeding [Unknown]
  - No adverse event [Unknown]
